FAERS Safety Report 8387434-8 (Version None)
Quarter: 2012Q2

REPORT INFORMATION
  Report Type: 
  Country: None (occurrence: None)
  Receive Date: 20120525
  Receipt Date: 20120516
  Transmission Date: 20120825
  Serious: Yes (Hospitalization)
  Sender: FDA-Public Use
  Company Number: JP-NOVOPROD-351908

PATIENT
  Age: 63 Year
  Sex: Female
  Weight: 53 kg

DRUGS (7)
  1. GLIMEPIRIDE [Concomitant]
     Dosage: 5 MG, QD
     Route: 048
  2. PENFILL 30R CHU [Suspect]
     Indication: TYPE 2 DIABETES MELLITUS
     Dosage: UNK
     Route: 058
     Dates: start: 20040101
  3. VOGLIBOSE [Concomitant]
     Dosage: 0.9 MG, QD
     Route: 048
  4. OLMESARTAN MEDOXOMIL [Concomitant]
     Dosage: 40 MG, QD
     Route: 048
  5. NIFEDIPINE [Concomitant]
     Dosage: 60 MG, QD
     Route: 048
  6. FUROSEMIDE [Concomitant]
     Dosage: 20 MG, QD
     Route: 048
  7. NOVORAPID CHU FLEXPEN [Suspect]
     Indication: TYPE 2 DIABETES MELLITUS
     Dosage: 34 U, QD (24-0-10 MORNING AND EVENING)
     Route: 058
     Dates: start: 20020101, end: 20040101

REACTIONS (7)
  - DRUG HYPERSENSITIVITY [None]
  - DIABETES MELLITUS INADEQUATE CONTROL [None]
  - TYPE I HYPERSENSITIVITY [None]
  - ADRENAL NEOPLASM [None]
  - DIABETIC FOOT [None]
  - LATENT AUTOIMMUNE DIABETES IN ADULTS [None]
  - ANTI-GAD ANTIBODY POSITIVE [None]
